FAERS Safety Report 7767989-4 (Version None)
Quarter: 2011Q3

REPORT INFORMATION
  Report Type: 
  Country: None (occurrence: None)
  Receive Date: 20110922
  Receipt Date: 20110512
  Transmission Date: 20111222
  Serious: No
  Sender: FDA-Public Use
  Company Number: US-ASTRAZENECA-2011SE28633

PATIENT
  Age: 51 Year
  Sex: Male
  Weight: 102.1 kg

DRUGS (7)
  1. CYMBALTA [Concomitant]
     Indication: DEPRESSION
  2. SEROQUEL XR [Suspect]
     Route: 048
     Dates: start: 20110507
  3. SEROQUEL XR [Suspect]
     Indication: DEPRESSION
     Route: 048
     Dates: start: 20100101, end: 20110401
  4. CHOLESTEROL MEDICATION [Concomitant]
  5. SEROQUEL XR [Suspect]
     Route: 048
     Dates: start: 20110401, end: 20110407
  6. MORPHINE [Concomitant]
     Indication: PAIN
  7. LORAZEPAM [Concomitant]
     Indication: NIGHTMARE

REACTIONS (4)
  - HYPERSOMNIA [None]
  - AMNESIA [None]
  - DISORIENTATION [None]
  - DIZZINESS [None]
